FAERS Safety Report 24438178 (Version 3)
Quarter: 2024Q4

REPORT INFORMATION
  Report Type: Spontaneous
  Country: ES (occurrence: ES)
  Receive Date: 20241015
  Receipt Date: 20241118
  Transmission Date: 20250115
  Serious: Yes (Death, Life-Threatening, Other)
  Sender: BRISTOL-MYERS SQUIBB COMPANY
  Company Number: ES-PFIZER INC-PV202400129786

PATIENT
  Sex: Female

DRUGS (8)
  1. AZTREONAM [Suspect]
     Active Substance: AZTREONAM
     Indication: Pneumonia
     Dosage: UNK
  2. AZTREONAM [Suspect]
     Active Substance: AZTREONAM
     Indication: Septic shock
  3. LINEZOLID [Suspect]
     Active Substance: LINEZOLID
     Indication: Septic shock
     Dosage: UNK
  4. LINEZOLID [Suspect]
     Active Substance: LINEZOLID
     Indication: Pneumonia
  5. METRONIDAZOLE [Suspect]
     Active Substance: METRONIDAZOLE
     Indication: Septic shock
     Dosage: UNK
  6. METRONIDAZOLE [Suspect]
     Active Substance: METRONIDAZOLE
     Indication: Pneumonia
  7. AVIBACTAM [Suspect]
     Active Substance: AVIBACTAM
     Indication: Antibiotic therapy
  8. AZTREONAM [Suspect]
     Active Substance: AZTREONAM
     Indication: Pneumonia

REACTIONS (3)
  - Therapeutic product effect incomplete [Unknown]
  - Pneumonia [Fatal]
  - Septic shock [Fatal]
